FAERS Safety Report 16642173 (Version 1)
Quarter: 2019Q3

REPORT INFORMATION
  Report Type: Spontaneous
  Country: CN (occurrence: CN)
  Receive Date: 20190729
  Receipt Date: 20190729
  Transmission Date: 20191004
  Serious: Yes (Other)
  Sender: FDA-Public Use
  Company Number: CN-PFIZER INC-2019317971

PATIENT
  Age: 83 Year
  Sex: Female

DRUGS (1)
  1. CELECOXIB. [Suspect]
     Active Substance: CELECOXIB
     Indication: THERAPEUTIC PROCEDURE
     Dosage: 1 DF, 2X/DAY
     Route: 048
     Dates: start: 20190620, end: 20190627

REACTIONS (3)
  - Rash [Recovering/Resolving]
  - Pruritus [Unknown]
  - Blister [Unknown]

NARRATIVE: CASE EVENT DATE: 20190621
